FAERS Safety Report 7348608-8 (Version None)
Quarter: 2011Q1

REPORT INFORMATION
  Report Type: 
  Country: None (occurrence: None)
  Receive Date: 20110314
  Receipt Date: 20110303
  Transmission Date: 20110831
  Serious: No
  Sender: FDA-Public Use
  Company Number: US-BIOGENIDEC-2010BI042996

PATIENT
  Age: 58 Year
  Sex: Female
  Weight: 68 kg

DRUGS (2)
  1. TYSABRI [Suspect]
     Indication: MULTIPLE SCLEROSIS
     Route: 042
     Dates: start: 20101202, end: 20101202
  2. WELLBUTRIN [Concomitant]

REACTIONS (2)
  - URTICARIA [None]
  - HYPERSENSITIVITY [None]
